FAERS Safety Report 8212523-8 (Version None)
Quarter: 2012Q1

REPORT INFORMATION
  Report Type: 
  Country: None (occurrence: None)
  Receive Date: 20120315
  Receipt Date: 20120306
  Transmission Date: 20120608
  Serious: Yes (Other)
  Sender: FDA-Public Use
  Company Number: GB-GLAXOSMITHKLINE-B0788545A

PATIENT
  Age: 53 Year
  Sex: Female

DRUGS (1)
  1. REQUIP XL [Suspect]
     Indication: PARKINSON'S DISEASE
     Route: 065

REACTIONS (13)
  - DIZZINESS [None]
  - VISUAL IMPAIRMENT [None]
  - FEELING ABNORMAL [None]
  - ANXIETY [None]
  - MIGRAINE [None]
  - MUSCULOSKELETAL PAIN [None]
  - NAUSEA [None]
  - HEADACHE [None]
  - VERTIGO [None]
  - PAIN IN EXTREMITY [None]
  - HALLUCINATION [None]
  - SLEEP PARALYSIS [None]
  - DYSPEPSIA [None]
